FAERS Safety Report 18112385 (Version 1)
Quarter: 2020Q3

REPORT INFORMATION
  Report Type: Spontaneous
  Country: US (occurrence: US)
  Receive Date: 20200805
  Receipt Date: 20200805
  Transmission Date: 20201103
  Serious: Yes (Other)
  Sender: FDA-Public Use
  Company Number: NVSC2020US216333

PATIENT
  Age: 66 Year
  Sex: Female

DRUGS (2)
  1. IMIQUIMOD. [Suspect]
     Active Substance: IMIQUIMOD
     Indication: POROKERATOSIS
     Dosage: UNK
     Route: 061
  2. 5 FLUOROURACIL [Suspect]
     Active Substance: FLUOROURACIL
     Indication: POROKERATOSIS
     Dosage: UNK
     Route: 061

REACTIONS (2)
  - Porokeratosis [Unknown]
  - Product use in unapproved indication [Unknown]
